FAERS Safety Report 9404355 (Version 1)
Quarter: 2013Q3

REPORT INFORMATION
  Report Type: Spontaneous
  Country: US (occurrence: None)
  Receive Date: 20130716
  Receipt Date: 20130716
  Transmission Date: 20140515
  Serious: Yes (Hospitalization)
  Sender: FDA-Public Use
  Company Number: None

PATIENT
  Sex: Male
  Weight: 87.6 kg

DRUGS (2)
  1. DOCETAXEL (TAXOTERE) [Suspect]
  2. BICALUTAMIDE [Suspect]

REACTIONS (6)
  - Lethargy [None]
  - Culture wound positive [None]
  - Enterobacter test positive [None]
  - Heart rate increased [None]
  - Neutrophil count decreased [None]
  - White blood cell count decreased [None]
